FAERS Safety Report 6532759-1 (Version None)
Quarter: 2010Q1

REPORT INFORMATION
  Report Type: 
  Country: None (occurrence: None)
  Receive Date: 20100111
  Receipt Date: 20100105
  Transmission Date: 20100710
  Serious: Yes (Hospitalization, Other)
  Sender: FDA-Public Use
  Company Number: PHHY2009BR26268

PATIENT
  Age: 34 Year
  Sex: Female
  Weight: 104 kg

DRUGS (3)
  1. VISKEN [Suspect]
     Indication: HYPERTENSION
     Dosage: 5 MG, Q6H
     Route: 048
     Dates: start: 20081001
  2. VISKEN [Suspect]
     Dosage: UNK
     Route: 048
  3. VISKEN [Suspect]
     Dosage: 5 MG, Q8H
     Route: 048

REACTIONS (6)
  - BLOOD PRESSURE INCREASED [None]
  - DEPRESSION [None]
  - DRUG EXPOSURE DURING PREGNANCY [None]
  - ECLAMPSIA [None]
  - HEADACHE [None]
  - INCORRECT DOSE ADMINISTERED [None]
